FAERS Safety Report 10736119 (Version 1)
Quarter: 2015Q1

REPORT INFORMATION
  Report Type: Spontaneous
  Country: GB (occurrence: GB)
  Receive Date: 20150126
  Receipt Date: 20150126
  Transmission Date: 20150721
  Serious: Yes (Other)
  Sender: FDA-Public Use
  Company Number: GB-JNJFOC-20150112600

PATIENT
  Age: 87 Year
  Sex: Male
  Weight: 76.51 kg

DRUGS (9)
  1. ALFUZOSIN [Concomitant]
     Active Substance: ALFUZOSIN
     Route: 065
     Dates: start: 20141006, end: 20141222
  2. ASPIRIN. [Concomitant]
     Active Substance: ASPIRIN
     Route: 065
     Dates: start: 20141006
  3. FOLIC ACID. [Concomitant]
     Active Substance: FOLIC ACID
     Route: 065
     Dates: start: 20141224
  4. RIVAROXABAN [Suspect]
     Active Substance: RIVAROXABAN
     Indication: PRODUCT USED FOR UNKNOWN INDICATION
     Route: 048
     Dates: start: 20141126
  5. DECAPEPTYL [Concomitant]
     Active Substance: TRIPTORELIN ACETATE
     Route: 065
     Dates: start: 20140828
  6. CYPROTERONE ACETATE [Concomitant]
     Active Substance: CYPROTERONE ACETATE
     Route: 065
     Dates: start: 20141006
  7. BISOPROLOL [Concomitant]
     Active Substance: BISOPROLOL
     Route: 065
     Dates: start: 20141006
  8. TIMOPTOL [Concomitant]
     Active Substance: TIMOLOL
     Route: 065
     Dates: start: 20141006, end: 20141103
  9. TIMOLOL MALEATE. [Concomitant]
     Active Substance: TIMOLOL MALEATE
     Route: 065
     Dates: start: 20141103

REACTIONS (2)
  - Blister [Recovered/Resolved]
  - Epistaxis [Recovered/Resolved]

NARRATIVE: CASE EVENT DATE: 20150102
